FAERS Safety Report 4341531-2 (Version None)
Quarter: 2004Q2

REPORT INFORMATION
  Report Type: 
  Country: None (occurrence: None)
  Receive Date: 20040415
  Receipt Date: 20040330
  Transmission Date: 20050107
  Serious: Yes (Hospitalization)
  Sender: FDA-Public Use
  Company Number: ATO-04-0309

PATIENT
  Age: 25 Year
  Sex: Female
  Weight: 104.7809 kg

DRUGS (4)
  1. TRISENOX [Suspect]
     Indication: ACUTE PROMYELOCYTIC LEUKAEMIA
     Dosage: (0.15 MG/KG, 5X) IVI
     Route: 042
     Dates: start: 20040223, end: 20040324
  2. ZOLOFT [Concomitant]
  3. PREMPO [Concomitant]
  4. VICODIN [Concomitant]

REACTIONS (2)
  - GRAND MAL CONVULSION [None]
  - PAIN [None]
